FAERS Safety Report 4941637-0 (Version None)
Quarter: 2006Q1

REPORT INFORMATION
  Report Type: 
  Country: None (occurrence: None)
  Receive Date: 20060307
  Receipt Date: 20060228
  Transmission Date: 20060701
  Serious: Yes (Hospitalization)
  Sender: FDA-Public Use
  Company Number: TIF2006A00008

PATIENT
  Age: 72 Year
  Sex: Male

DRUGS (2)
  1. ENANTONE  11.25 (LEUPROLIDE ACETATE) [Suspect]
     Indication: PROSTATE CANCER
     Dosage: 11.25 MG (11.25 MG)
  2. CASODEX [Concomitant]

REACTIONS (1)
  - LIPOMATOSIS [None]
